FAERS Safety Report 6702372 (Version 1)
Quarter: 2020Q3

REPORT INFORMATION
  Report Type: Report from Study
  Country: HN (occurrence: HN)
  Receive Date: 20080717
  Receipt Date: 20080717
  Transmission Date: 20201105
  Serious: Yes (Death)
  Sender: FDA-Public Use
  Company Number: HN-ROCHE-575253

PATIENT
  Age: 73 Year
  Sex: Female

DRUGS (1)
  1. IBANDRONIC ACID. [Suspect]
     Active Substance: IBANDRONIC ACID
     Indication: OSTEOPOROSIS
     Route: 048
     Dates: start: 20070810, end: 20080510

REACTIONS (1)
  - Death [Fatal]

NARRATIVE: CASE EVENT DATE: 20080602
